FAERS Safety Report 23430073 (Version 1)
Quarter: 2024Q1

REPORT INFORMATION
  Report Type: Spontaneous
  Country: DE (occurrence: DE)
  Receive Date: 20240122
  Receipt Date: 20240122
  Transmission Date: 20240409
  Serious: Yes (Other)
  Sender: FDA-Public Use
  Company Number: DE-AMGEN-DEUSP2024010931

PATIENT

DRUGS (2)
  1. PANITUMUMAB [Suspect]
     Active Substance: PANITUMUMAB
     Indication: Colorectal cancer
     Dosage: UNK
     Route: 065
  2. TRAMETINIB [Concomitant]
     Active Substance: TRAMETINIB
     Indication: Colorectal cancer
     Dosage: UNK
     Route: 065

REACTIONS (2)
  - Colorectal cancer [Unknown]
  - Treatment failure [Unknown]
